FAERS Safety Report 9858094 (Version 1)
Quarter: 2014Q1

REPORT INFORMATION
  Report Type: Spontaneous
  Country: CL (occurrence: CL)
  Receive Date: 20140131
  Receipt Date: 20140131
  Transmission Date: 20141002
  Serious: Yes (Hospitalization, Other)
  Sender: FDA-Public Use
  Company Number: CL-JNJFOC-20140113234

PATIENT
  Age: 55 Year
  Sex: Male

DRUGS (4)
  1. DOXORUBICIN [Suspect]
     Indication: THYMOMA
     Route: 042
  2. CYCLOPHOSPHAMIDE [Suspect]
     Indication: THYMOMA
     Route: 065
  3. CISPLATIN [Suspect]
     Indication: THYMOMA
     Route: 065
  4. PREDNISONE [Suspect]
     Indication: THYMOMA
     Route: 065

REACTIONS (4)
  - Febrile neutropenia [Recovered/Resolved]
  - Combined immunodeficiency [Recovered/Resolved]
  - Thymoma [Unknown]
  - Product used for unknown indication [Unknown]
